FAERS Safety Report 8532677 (Version 3)
Quarter: 2012Q4

REPORT INFORMATION
  Report Type: 
  Country: US (occurrence: US)
  Receive Date: 20120426
  Receipt Date: 20120924
  Transmission Date: 20130627
  Serious: Yes (Death, Life-Threatening, Hospitalization, Other)
  Sender: FDA-Public Use
  Company Number: US-MPIJNJ-2011-06487

PATIENT
  Age: 74 Year
  Sex: Male
  Weight: 83.9 kg

DRUGS (8)
  1. VELCADE [Suspect]
     Indication: MULTIPLE MYELOMA
     Dosage: 3.5 mg, Cyclic
     Route: 042
     Dates: start: 20110701, end: 20110912
  2. DECADRON /00016001/ [Concomitant]
     Indication: MULTIPLE MYELOMA
     Dosage: 40 mg, Cyclic
     Route: 048
     Dates: start: 20110701, end: 20110911
  3. ASPIRIN [Concomitant]
     Indication: PRODUCT USED FOR UNKNOWN INDICATION
     Dosage: 81 mg, UNK
     Route: 048
     Dates: start: 20110701
  4. HYDROCODONE W/ACETAMINOPHEN [Concomitant]
     Indication: PAIN
     Dosage: UNK
     Route: 048
     Dates: start: 20110822
  5. MULTIVITAMINS [Concomitant]
     Indication: PRODUCT USED FOR UNKNOWN INDICATION
     Dosage: UNK
     Route: 048
     Dates: start: 20110602
  6. NIFEDIPINE [Concomitant]
     Indication: PRODUCT USED FOR UNKNOWN INDICATION
     Dosage: 30 mg, UNK
     Route: 048
     Dates: start: 20110602
  7. RANITIDINE [Concomitant]
     Indication: PRODUCT USED FOR UNKNOWN INDICATION
     Dosage: 150 mg, UNK
     Route: 048
     Dates: start: 20110701
  8. NAPROXEN [Concomitant]
     Indication: PRODUCT USED FOR UNKNOWN INDICATION
     Dosage: 500 mg, prn
     Route: 048
     Dates: start: 20110602, end: 20110912

REACTIONS (9)
  - Anaemia [Unknown]
  - Multi-organ failure [Recovering/Resolving]
  - Duodenitis [Unknown]
  - Oesophagitis [Unknown]
  - Sepsis [Not Recovered/Not Resolved]
  - Plasma cell myeloma [Fatal]
  - Renal failure acute [Not Recovered/Not Resolved]
  - Abdominal pain [Recovered/Resolved]
  - Hypertension [Recovered/Resolved]
